FAERS Safety Report 5745866-8 (Version None)
Quarter: 2008Q2

REPORT INFORMATION
  Report Type: 
  Country: None (occurrence: None)
  Receive Date: 20080520
  Receipt Date: 20080512
  Transmission Date: 20081010
  Serious: Yes (Other)
  Sender: FDA-Public Use
  Company Number: 028-20785-08050640

PATIENT
  Age: 55 Year
  Sex: Male

DRUGS (7)
  1. THALOMID [Suspect]
     Indication: MULTIPLE MYELOMA
     Dosage: 150 MG, 3 IN 1 D, ORAL; 100-200 MG, DAILY, ORAL
     Route: 048
     Dates: start: 20080201, end: 20080301
  2. THALOMID [Suspect]
     Indication: MULTIPLE MYELOMA
     Dosage: 150 MG, 3 IN 1 D, ORAL; 100-200 MG, DAILY, ORAL
     Route: 048
     Dates: start: 20080501
  3. BICARBONATE (SODIUM BICARBONATE) [Concomitant]
  4. VITAMIN D [Concomitant]
  5. CALCIUM (CALCIUM) [Concomitant]
  6. AREDIA [Concomitant]
  7. PREDNISONE TAB [Concomitant]

REACTIONS (3)
  - PARAESTHESIA [None]
  - RENAL FAILURE [None]
  - SOMNOLENCE [None]
